FAERS Safety Report 9359213 (Version 1)
Quarter: 2013Q2

REPORT INFORMATION
  Report Type: Spontaneous
  Country: US (occurrence: US)
  Receive Date: 20130620
  Receipt Date: 20130620
  Transmission Date: 20140414
  Serious: Yes (Other)
  Sender: FDA-Public Use
  Company Number: US-FRI-1000045945

PATIENT
  Sex: Female

DRUGS (4)
  1. VIIBRYD [Suspect]
     Dates: start: 20130512
  2. TOPAMAX [Concomitant]
     Indication: MIGRAINE
  3. CLINDAMYCIN [Concomitant]
     Indication: ACNE
  4. BIRTH CONTROL (NOS) [Concomitant]
     Indication: CONTRACEPTION

REACTIONS (4)
  - Loss of consciousness [Unknown]
  - Confusional state [Unknown]
  - Insomnia [Unknown]
  - Diarrhoea [Unknown]
